FAERS Safety Report 8807332 (Version 2)
Quarter: 2012Q4

REPORT INFORMATION
  Report Type: Report from Study
  Country: US (occurrence: US)
  Receive Date: 20120925
  Receipt Date: 20121009
  Transmission Date: 20130627
  Serious: Yes (Other)
  Sender: FDA-Public Use
  Company Number: US-ROCHE-1122177

PATIENT
  Sex: Female

DRUGS (1)
  1. VISMODEGIB [Suspect]
     Indication: BASAL CELL CARCINOMA
     Route: 065

REACTIONS (6)
  - Cellulitis [Unknown]
  - Thrombosis [Unknown]
  - Alopecia [Unknown]
  - Nausea [Unknown]
  - Muscle spasms [Unknown]
  - Dysgeusia [Unknown]
